FAERS Safety Report 6247285-7 (Version None)
Quarter: 2009Q2

REPORT INFORMATION
  Report Type: 
  Country: None (occurrence: None)
  Receive Date: 20090624
  Receipt Date: 20090624
  Transmission Date: 20091009
  Serious: No
  Sender: FDA-Public Use
  Company Number: None

PATIENT
  Age: 44 Year
  Sex: Female
  Weight: 60 kg

DRUGS (6)
  1. PHENYTOIN [Suspect]
     Indication: CONVULSION
     Dosage: 100MG PO TID
     Route: 048
     Dates: start: 20090317, end: 20090414
  2. GABAPENTIN [Concomitant]
  3. ONDANSETRON [Concomitant]
  4. PROCHLORPERAZINE [Concomitant]
  5. OMEPRAZOLE [Concomitant]
  6. ENOXAPARIN SODIUM [Concomitant]

REACTIONS (1)
  - WHITE BLOOD CELL COUNT DECREASED [None]
